FAERS Safety Report 19660662 (Version 1)
Quarter: 2021Q3

REPORT INFORMATION
  Report Type: Spontaneous
  Country: HU (occurrence: HU)
  Receive Date: 20210805
  Receipt Date: 20210805
  Transmission Date: 20211014
  Serious: Yes (Death, Hospitalization, Other)
  Sender: FDA-Public Use
  Company Number: HU-ACCORD-234576

PATIENT
  Age: 11 Year
  Sex: Male

DRUGS (4)
  1. CISPLATIN. [Suspect]
     Active Substance: CISPLATIN
     Indication: OSTEOSARCOMA
     Dosage: UP TO 15 WEEKLY BLOCKS ACCORDING TO COSS 86 PROTOCOL
  2. IFOSFAMIDE. [Suspect]
     Active Substance: IFOSFAMIDE
     Indication: OSTEOSARCOMA
     Dosage: UP TO 15 WEEKLY BLOCKS ACCORDING TO COSS 86 PROTOCOL
  3. DOXORUBICIN [Suspect]
     Active Substance: DOXORUBICIN
     Indication: OSTEOSARCOMA
     Dosage: UP TO 15 WEEKLY BLOCKS ACCORDING TO COSS 86 PROTOCOL
  4. METHOTREXATE. [Suspect]
     Active Substance: METHOTREXATE
     Indication: OSTEOSARCOMA
     Dosage: UP TO 15 WEEKLY BLOCKS ACCORDING TO COSS 86 PROTOCOL

REACTIONS (8)
  - Neutropenia [Fatal]
  - Haematemesis [Fatal]
  - Off label use [Unknown]
  - Cough [Fatal]
  - Haemoptysis [Fatal]
  - Anaemia [Fatal]
  - Septic shock [Fatal]
  - Multiple organ dysfunction syndrome [Fatal]
